FAERS Safety Report 5363328-7 (Version None)
Quarter: 2007Q2

REPORT INFORMATION
  Report Type: 
  Country: None (occurrence: None)
  Receive Date: 20070618
  Receipt Date: 20070612
  Transmission Date: 20071010
  Serious: Yes (Hospitalization)
  Sender: FDA-Public Use
  Company Number: 2007SP011729

PATIENT
  Age: 49 Year
  Sex: Male

DRUGS (2)
  1. PEG-INTRON [Suspect]
     Indication: HEPATITIS C
     Dosage: 120 MCG; QW; SC
     Route: 058
     Dates: start: 20060829, end: 20070605
  2. REBETOL [Suspect]
     Indication: HEPATITIS C
     Dosage: 800 MG; ; PO
     Route: 048
     Dates: start: 20060829, end: 20070605

REACTIONS (1)
  - KETOACIDOSIS [None]
